FAERS Safety Report 19421546 (Version 1)
Quarter: 2021Q2

REPORT INFORMATION
  Report Type: Spontaneous
  Country: US (occurrence: US)
  Receive Date: 20210615
  Receipt Date: 20210615
  Transmission Date: 20210717
  Serious: No
  Sender: FDA-Public Use
  Company Number: None

PATIENT
  Age: 62 Year
  Sex: Female

DRUGS (1)
  1. RIFAMPIN. [Suspect]
     Active Substance: RIFAMPIN
     Indication: LUNG DISORDER

REACTIONS (3)
  - Asthenia [None]
  - Dry skin [None]
  - Increased tendency to bruise [None]

NARRATIVE: CASE EVENT DATE: 20210615
